FAERS Safety Report 9657330 (Version 2)
Quarter: 2014Q1

REPORT INFORMATION
  Report Type: Report from Study
  Country: TZ (occurrence: TZ)
  Receive Date: 20131030
  Receipt Date: 20140221
  Transmission Date: 20141002
  Serious: Yes (Congenital Anomaly)
  Sender: FDA-Public Use
  Company Number: TZ-VIIV HEALTHCARE LIMITED-A1047519A

PATIENT
  Age: 0 None
  Sex: Female
  Weight: 3.3 kg

DRUGS (1)
  1. RETROVIR [Suspect]
     Indication: ANTIVIRAL TREATMENT
     Dosage: 600MG PER DAY
     Route: 064
     Dates: start: 20121023

REACTIONS (2)
  - Talipes [Unknown]
  - Foetal exposure during pregnancy [Unknown]
